FAERS Safety Report 18595992 (Version 1)
Quarter: 2020Q4

REPORT INFORMATION
  Report Type: Spontaneous
  Country: US (occurrence: US)
  Receive Date: 20201209
  Receipt Date: 20201209
  Transmission Date: 20210114
  Serious: No
  Sender: FDA-Public Use
  Company Number: US-SUPERNUS PHARMACEUTICALS, INC.-2020SUP00270

PATIENT
  Sex: Male

DRUGS (2)
  1. TROKENDI XR [Suspect]
     Active Substance: TOPIRAMATE
     Dosage: 50 MG
  2. TROKENDI XR [Suspect]
     Active Substance: TOPIRAMATE
     Dosage: 75 MG

REACTIONS (1)
  - Drug ineffective [Unknown]
